FAERS Safety Report 25300204 (Version 1)
Quarter: 2025Q2

REPORT INFORMATION
  Report Type: Spontaneous
  Country: JP (occurrence: JP)
  Receive Date: 20250512
  Receipt Date: 20250512
  Transmission Date: 20250717
  Serious: Yes (Other)
  Sender: MYLAN
  Company Number: JP-MYLANLABS-2025M1039224

PATIENT
  Age: 16 Year
  Sex: Male

DRUGS (10)
  1. CYCLOSPORINE [Suspect]
     Active Substance: CYCLOSPORINE
     Indication: Acne conglobata
     Dosage: 200 MILLIGRAM, QD
  2. ADALIMUMAB [Suspect]
     Active Substance: ADALIMUMAB
     Indication: Acne conglobata
     Dosage: 40 MILLIGRAM, QW
  3. DAPSONE [Suspect]
     Active Substance: DAPSONE
     Indication: Acne conglobata
     Dosage: 100 MILLIGRAM, QD
  4. COLCHICINE [Suspect]
     Active Substance: COLCHICINE
     Indication: Acne conglobata
     Dosage: 2 MILLIGRAM, QD
  5. AZATHIOPRINE [Suspect]
     Active Substance: AZATHIOPRINE
     Indication: Acne conglobata
     Dosage: 100 MILLIGRAM, QD
  6. APREMILAST [Suspect]
     Active Substance: APREMILAST
     Indication: Acne conglobata
     Dosage: 60 MILLIGRAM, QD
  7. PREDNISOLONE [Concomitant]
     Active Substance: PREDNISOLONE
     Indication: Acne conglobata
     Dosage: 40 MILLIGRAM, QD
  8. PREDNISOLONE [Concomitant]
     Active Substance: PREDNISOLONE
     Dosage: 7.5 MILLIGRAM, QD
  9. PREDNISOLONE [Concomitant]
     Active Substance: PREDNISOLONE
     Dosage: 5 MILLIGRAM, QD
  10. ETRETINATE [Concomitant]
     Active Substance: ETRETINATE
     Indication: Acne conglobata
     Dosage: 60 MILLIGRAM, QD

REACTIONS (1)
  - Drug ineffective [Recovering/Resolving]
